FAERS Safety Report 11189069 (Version 5)
Quarter: 2015Q3

REPORT INFORMATION
  Report Type: Report from Study
  Country: JP (occurrence: JP)
  Receive Date: 20150615
  Receipt Date: 20150914
  Transmission Date: 20151125
  Serious: Yes (Death, Life-Threatening)
  Sender: FDA-Public Use
  Company Number: JP-EISAI MEDICAL RESEARCH-EC-2015-007666

PATIENT
  Age: 61 Year
  Sex: Female
  Weight: 30 kg

DRUGS (17)
  1. LENVIMA [Suspect]
     Active Substance: LENVATINIB
     Route: 048
     Dates: start: 20150530, end: 20150603
  2. AMLODIN [Concomitant]
     Active Substance: AMLODIPINE BESYLATE
  3. LEVOTHYROXINE. [Concomitant]
     Active Substance: LEVOTHYROXINE
  4. TAKEPRON [Concomitant]
     Active Substance: LANSOPRAZOLE
  5. MOSAPRIDE [Concomitant]
     Active Substance: MOSAPRIDE
  6. LAC-B [Concomitant]
     Active Substance: BIFIDOBACTERIUM SPP.
  7. ASPARA POTASSIUM [Concomitant]
     Active Substance: POTASSIUM ASPARTATE
  8. STROCAIN [Concomitant]
     Active Substance: OXETHAZAINE
  9. DIOVAN [Concomitant]
     Active Substance: VALSARTAN
  10. OPSO [Concomitant]
     Active Substance: MORPHINE HYDROCHLORIDE
  11. HICEE [Concomitant]
  12. PROMAC [Concomitant]
     Active Substance: NITROFURANTOIN
  13. LENVIMA [Suspect]
     Active Substance: LENVATINIB
     Indication: ANAPLASTIC THYROID CANCER
     Route: 048
     Dates: start: 20150521, end: 20150529
  14. LENVIMA [Suspect]
     Active Substance: LENVATINIB
     Route: 048
     Dates: start: 20150606, end: 20150610
  15. HOKUNALIN:TAPE [Concomitant]
     Active Substance: TULOBUTEROL
  16. MORPHES [Concomitant]
  17. LENVIMA [Suspect]
     Active Substance: LENVATINIB
     Route: 048
     Dates: start: 20150604, end: 20150605

REACTIONS (2)
  - Malignant neoplasm progression [Fatal]
  - Tumour haemorrhage [Not Recovered/Not Resolved]

NARRATIVE: CASE EVENT DATE: 20150610
